FAERS Safety Report 22179911 (Version 2)
Quarter: 2023Q2

REPORT INFORMATION
  Report Type: Report from Study
  Country: MX (occurrence: MX)
  Receive Date: 20230406
  Receipt Date: 20230411
  Transmission Date: 20230721
  Serious: Yes (Other)
  Sender: FDA-Public Use
  Company Number: MX-UCBSA-2023017310

PATIENT
  Age: 55 Year
  Sex: Male
  Weight: 56 kg

DRUGS (1)
  1. CERTOLIZUMAB PEGOL [Suspect]
     Active Substance: CERTOLIZUMAB PEGOL
     Indication: Ankylosing spondylitis
     Dosage: 200 MILLIGRAM, EV 2 WEEKS(QOW)
     Route: 058
     Dates: end: 20230115

REACTIONS (5)
  - Myocardial infarction [Recovered/Resolved]
  - Renal failure [Unknown]
  - Pneumonia [Recovered/Resolved]
  - Ankylosing spondylitis [Unknown]
  - Intentional dose omission [Unknown]

NARRATIVE: CASE EVENT DATE: 20230101
